FAERS Safety Report 12380959 (Version 3)
Quarter: 2016Q2

REPORT INFORMATION
  Report Type: Spontaneous
  Country: TR (occurrence: TR)
  Receive Date: 20160518
  Receipt Date: 20160627
  Transmission Date: 20160815
  Serious: Yes (Life-Threatening, Other)
  Sender: FDA-Public Use
  Company Number: TR-ACTAVIS-2016-10249

PATIENT
  Age: 62 Year
  Sex: Male

DRUGS (1)
  1. CLOPIDOGREL BISULFATE (UNKNOWN) [Suspect]
     Active Substance: CLOPIDOGREL BISULFATE
     Indication: PRODUCT USED FOR UNKNOWN INDICATION
     Dosage: 600 MG, TOTAL
     Route: 065

REACTIONS (2)
  - Cardiac tamponade [Recovered/Resolved]
  - Haemorrhage [Recovered/Resolved]
